FAERS Safety Report 8556735-2 (Version None)
Quarter: 2012Q3

REPORT INFORMATION
  Report Type: 
  Country: None (occurrence: None)
  Receive Date: 20120801
  Receipt Date: 20120724
  Transmission Date: 20120928
  Serious: Yes (Other)
  Sender: FDA-Public Use
  Company Number: US-ABBOTT-12P-163-0949414-00

PATIENT
  Sex: Male
  Weight: 108 kg

DRUGS (20)
  1. TRILIPIX [Suspect]
     Indication: DYSLIPIDAEMIA
     Dates: end: 20110101
  2. VITAMIN B-12 [Concomitant]
     Indication: PRODUCT USED FOR UNKNOWN INDICATION
     Route: 050
  3. BUPROPION HYDROCHLORIDE [Concomitant]
     Indication: INCREASED APPETITE
  4. KEFLEX [Suspect]
     Indication: URINARY TRACT INFECTION
     Dates: start: 20110601
  5. SINGULAIR [Concomitant]
     Indication: CHRONIC OBSTRUCTIVE PULMONARY DISEASE
     Dosage: DAILY
  6. CALCIUM CITRATE [Concomitant]
     Indication: PRODUCT USED FOR UNKNOWN INDICATION
     Dosage: DAILY
  7. CLARITIN [Concomitant]
     Indication: HYPERSENSITIVITY
     Dosage: DAILY
  8. ASMANEX TWISTHALER [Concomitant]
     Indication: CHRONIC OBSTRUCTIVE PULMONARY DISEASE
     Dosage: DAILY
  9. PROVENTIL-HFA [Concomitant]
     Indication: ASTHMA
     Dosage: EVERY 4-6 HOURS
  10. ALLOPURINOL [Concomitant]
     Indication: GOUTY ARTHRITIS
     Dosage: DAILY
  11. LISINOPRIL [Concomitant]
     Indication: HYPERTENSION
     Dosage: DAILY
  12. PROTONIX [Concomitant]
     Indication: PRODUCT USED FOR UNKNOWN INDICATION
     Dosage: DAILY
  13. ASPIRIN [Concomitant]
     Indication: PRODUCT USED FOR UNKNOWN INDICATION
     Dosage: DAILY
  14. VITAMIN D [Concomitant]
     Indication: PRODUCT USED FOR UNKNOWN INDICATION
  15. QUESTRAN [Concomitant]
     Indication: GASTROINTESTINAL DISORDER
     Dosage: 1 PACKET 2-4 TIMES DAILY
  16. LOVAZA [Concomitant]
     Indication: BLOOD CHOLESTEROL INCREASED
  17. MULTI-VITAMINS [Concomitant]
     Indication: PRODUCT USED FOR UNKNOWN INDICATION
     Dosage: DAILY
  18. HUMIRA [Suspect]
     Indication: CROHN'S DISEASE
     Route: 058
     Dates: start: 20080202
  19. FORADIL [Concomitant]
     Indication: CHRONIC OBSTRUCTIVE PULMONARY DISEASE
     Route: 055
  20. TRAMADOL HYDROCHLORIDE [Concomitant]
     Indication: PAIN

REACTIONS (8)
  - DRUG INEFFECTIVE [None]
  - FALL [None]
  - HEPATIC ENZYME INCREASED [None]
  - BLOOD TRIGLYCERIDES INCREASED [None]
  - PROSTATOMEGALY [None]
  - URINARY TRACT INFECTION [None]
  - JOINT HYPEREXTENSION [None]
  - BLOOD CREATINE PHOSPHOKINASE INCREASED [None]
